FAERS Safety Report 6011574-1 (Version None)
Quarter: 2008Q4

REPORT INFORMATION
  Report Type: 
  Country: None (occurrence: None)
  Receive Date: 20081218
  Receipt Date: 20080912
  Transmission Date: 20090506
  Serious: No
  Sender: FDA-Public Use
  Company Number: US-ASTRAZENECA-2008UW18980

PATIENT
  Age: 59 Year
  Sex: Female
  Weight: 52.2 kg

DRUGS (3)
  1. CRESTOR [Suspect]
     Indication: BLOOD CHOLESTEROL INCREASED
     Route: 048
     Dates: start: 20080911
  2. LEVOXYL [Concomitant]
  3. LEVSINEX [Concomitant]

REACTIONS (2)
  - ABDOMINAL PAIN [None]
  - INSOMNIA [None]
